FAERS Safety Report 8827285 (Version 2)
Quarter: 2012Q4

REPORT INFORMATION
  Report Type: 
  Country: US (occurrence: US)
  Receive Date: 20121005
  Receipt Date: 20121113
  Transmission Date: 20130627
  Serious: No
  Sender: FDA-Public Use
  Company Number: US-ASTRAZENECA-2012SE74091

PATIENT
  Age: 30 Year
  Sex: Female

DRUGS (4)
  1. CAPRELSA [Suspect]
     Route: 048
     Dates: start: 20120702
  2. LEVEXYL [Concomitant]
  3. MULTIVITAMIN [Concomitant]
  4. PERCOCET [Concomitant]

REACTIONS (3)
  - Arthralgia [Unknown]
  - Myalgia [Unknown]
  - Stomatitis [Unknown]
